FAERS Safety Report 7141028-0 (Version None)
Quarter: 2010Q4

REPORT INFORMATION
  Report Type: 
  Country: None (occurrence: None)
  Receive Date: 20101201
  Receipt Date: 20101201
  Transmission Date: 20110411
  Serious: No
  Sender: FDA-Public Use
  Company Number: None

PATIENT
  Sex: Male
  Weight: 99 kg

DRUGS (4)
  1. BEVACIZUMAB (RHUMAB VEGF) [Suspect]
     Dosage: 1475 MG
     Dates: end: 20101021
  2. FLUOROURACIL [Suspect]
     Dosage: 243000 MG
     Dates: end: 20101104
  3. LEUCOVORIN CALCIUM [Suspect]
     Dosage: 3490 MG
     Dates: end: 20101104
  4. ELOXATIN [Suspect]
     Dosage: 745 MG
     Dates: end: 20101104

REACTIONS (1)
  - HYPERTENSION [None]
